FAERS Safety Report 9443692 (Version 1)
Quarter: 2013Q3

REPORT INFORMATION
  Report Type: Spontaneous
  Country: GL (occurrence: DK)
  Receive Date: 20130806
  Receipt Date: 20130806
  Transmission Date: 20140515
  Serious: Yes (Hospitalization, Disabling, Other)
  Sender: FDA-Public Use
  Company Number: GL-MERCK-1307DNK017064

PATIENT
  Age: 24 Year
  Sex: Female

DRUGS (1)
  1. MARVELON 28 [Suspect]
     Indication: CONTRACEPTION
     Dosage: STRENGTH: 150+30 MICROGRAMS
     Route: 048
     Dates: end: 20130702

REACTIONS (2)
  - Hemiparesis [Unknown]
  - Cerebral infarction [Recovering/Resolving]
